FAERS Safety Report 14780138 (Version 3)
Quarter: 2020Q1

REPORT INFORMATION
  Report Type: Spontaneous
  Country: US (occurrence: US)
  Receive Date: 20180419
  Receipt Date: 20200309
  Transmission Date: 20200409
  Serious: Yes (Hospitalization, Other)
  Sender: FDA-Public Use
  Company Number: US-ASTRAZENECA-2018SE47029

PATIENT
  Age: 22574 Day
  Sex: Male
  Weight: 88.9 kg

DRUGS (24)
  1. FUROSEMIDE. [Concomitant]
     Active Substance: FUROSEMIDE
  2. FAMOTIDINE. [Concomitant]
     Active Substance: FAMOTIDINE
  3. TYLENOL [Concomitant]
     Active Substance: ACETAMINOPHEN
  4. SIMVASTATIN. [Concomitant]
     Active Substance: SIMVASTATIN
  5. CHANTIX [Concomitant]
     Active Substance: VARENICLINE TARTRATE
  6. LOPRESSOR [Concomitant]
     Active Substance: METOPROLOL TARTRATE
  7. LISINOPRIL. [Concomitant]
     Active Substance: LISINOPRIL
  8. ATROVENT [Concomitant]
     Active Substance: IPRATROPIUM BROMIDE
  9. ASPIRIN. [Concomitant]
     Active Substance: ASPIRIN
  10. CLONIDINE. [Concomitant]
     Active Substance: CLONIDINE
  11. METOPROLOL. [Concomitant]
     Active Substance: METOPROLOL
  12. SYMBICORT [Concomitant]
     Active Substance: BUDESONIDE\FORMOTEROL FUMARATE DIHYDRATE
  13. ALBUTEROL. [Concomitant]
     Active Substance: ALBUTEROL
  14. NEXIUM [Suspect]
     Active Substance: ESOMEPRAZOLE MAGNESIUM
     Route: 048
     Dates: start: 2012, end: 2015
  15. AMLODIPINE [Concomitant]
     Active Substance: AMLODIPINE BESYLATE
  16. MICROZIDE [Concomitant]
     Active Substance: HYDROCHLOROTHIAZIDE
  17. HYDRALAZINE [Concomitant]
     Active Substance: HYDRALAZINE HYDROCHLORIDE
  18. DEXAMETHASONE. [Concomitant]
     Active Substance: DEXAMETHASONE
  19. CARVEDILOL. [Concomitant]
     Active Substance: CARVEDILOL
  20. NITROSTAT [Concomitant]
     Active Substance: NITROGLYCERIN
  21. KLOR-CON [Concomitant]
     Active Substance: POTASSIUM CHLORIDE
  22. LANOXIN [Concomitant]
     Active Substance: DIGOXIN
  23. FLOXIN [Concomitant]
     Active Substance: OFLOXACIN
  24. NORVASC [Concomitant]
     Active Substance: AMLODIPINE BESYLATE

REACTIONS (3)
  - Acute kidney injury [Unknown]
  - Chronic kidney disease [Unknown]
  - Renal failure [Unknown]

NARRATIVE: CASE EVENT DATE: 20130707
